FAERS Safety Report 7909259-7 (Version None)
Quarter: 2011Q4

REPORT INFORMATION
  Report Type: 
  Country: None (occurrence: None)
  Receive Date: 20111111
  Receipt Date: 20111101
  Transmission Date: 20120403
  Serious: Yes (Hospitalization)
  Sender: FDA-Public Use
  Company Number: US-BAYER-201031840NA

PATIENT
  Age: 44 Year
  Sex: Female

DRUGS (7)
  1. FROVA [Concomitant]
     Indication: MIGRAINE
     Dosage: UNK
     Dates: start: 20081214
  2. YAZ [Suspect]
     Indication: ACNE
     Dosage: UNK
     Dates: start: 20081020
  3. TOPAMAX [Concomitant]
     Dosage: UNK
     Dates: start: 20080129, end: 20081201
  4. PROPRANOLOL [Concomitant]
     Dosage: UNK
     Dates: start: 20081103, end: 20081130
  5. YAZ [Suspect]
     Dosage: UNK
     Dates: start: 20081216
  6. SOLODYN [Concomitant]
     Indication: ACNE
     Dosage: UNK
     Dates: start: 20081210
  7. MAXALT [Concomitant]
     Dosage: UNK
     Dates: start: 20081013

REACTIONS (3)
  - ANXIETY [None]
  - PULMONARY EMBOLISM [None]
  - DEPRESSION [None]
